FAERS Safety Report 4869088-8 (Version None)
Quarter: 2005Q4

REPORT INFORMATION
  Report Type: 
  Country: None (occurrence: None)
  Receive Date: 20051227
  Receipt Date: 20051212
  Transmission Date: 20060501
  Serious: Yes (Life-Threatening, Hospitalization, Other)
  Sender: FDA-Public Use
  Company Number: IT-2005-026482

PATIENT
  Age: 78 Year
  Sex: Female

DRUGS (1)
  1. ULTRAVIST 370 [Suspect]
     Indication: COMPUTERISED TOMOGRAM ABDOMEN
     Dosage: 100 ML, 1 DOSE, IV DRIP
     Route: 041
     Dates: start: 20051128, end: 20051128

REACTIONS (5)
  - CARDIAC ARREST [None]
  - CEREBRAL ISCHAEMIA [None]
  - COUGH [None]
  - HYPOXIA [None]
  - MUSCLE SPASMS [None]
